FAERS Safety Report 5391980-9 (Version None)
Quarter: 2007Q3

REPORT INFORMATION
  Report Type: 
  Country: None (occurrence: None)
  Receive Date: 20070720
  Receipt Date: 20070712
  Transmission Date: 20080115
  Serious: Yes (Disabling)
  Sender: FDA-Public Use
  Company Number: DE-JNJFOC-20070604123

PATIENT
  Age: 81 Year
  Sex: Female

DRUGS (2)
  1. LEVOFLOXACIN [Suspect]
     Route: 048
  2. LEVOFLOXACIN [Suspect]
     Indication: SINUSITIS
     Route: 048

REACTIONS (4)
  - DECUBITUS ULCER [None]
  - MUSCLE SPASMS [None]
  - TENDON RUPTURE [None]
  - VARICOSE VEIN [None]
